FAERS Safety Report 16545166 (Version 1)
Quarter: 2019Q3

REPORT INFORMATION
  Report Type: Spontaneous
  Country: US (occurrence: US)
  Receive Date: 20190708
  Receipt Date: 20190708
  Transmission Date: 20191004
  Serious: Yes (Other)
  Sender: FDA-Public Use
  Company Number: None

PATIENT
  Age: 54 Year
  Sex: Male
  Weight: 99 kg

DRUGS (2)
  1. FERRIC CARBOXYMALTOSE [Concomitant]
     Active Substance: FERRIC CARBOXYMALTOSE
     Dates: start: 20190627, end: 20190705
  2. FERRIC CARBOXYMALTOSE [Suspect]
     Active Substance: FERRIC CARBOXYMALTOSE
     Indication: IRON DEFICIENCY ANAEMIA
     Dosage: ?          OTHER FREQUENCY:2 DOSES A WK APART;?
     Route: 042
     Dates: start: 20190627, end: 20190705

REACTIONS (4)
  - Rash generalised [None]
  - Rash papular [None]
  - Rash erythematous [None]
  - Urticaria [None]

NARRATIVE: CASE EVENT DATE: 20190705
